FAERS Safety Report 6200291-0 (Version None)
Quarter: 2009Q2

REPORT INFORMATION
  Report Type: 
  Country: None (occurrence: None)
  Receive Date: 20090522
  Receipt Date: 20090519
  Transmission Date: 20091009
  Serious: Yes (Life-Threatening, Hospitalization)
  Sender: FDA-Public Use
  Company Number: ES-JNJFOC-20090504846

PATIENT
  Age: 65 Year
  Sex: Female

DRUGS (6)
  1. DURAGESIC-100 [Suspect]
     Indication: PAIN
     Route: 062
  2. NEURONTIN [Suspect]
     Indication: NEURALGIA
     Route: 048
  3. TRONOXAL [Suspect]
     Indication: LEIOMYOSARCOMA
     Route: 042
  4. VENLAFAXINE HCL [Concomitant]
     Indication: DEPRESSION
  5. OMEPRAZOLE [Concomitant]
     Indication: PROPHYLAXIS
  6. CLEXANE [Concomitant]
     Indication: THROMBOSIS PROPHYLAXIS

REACTIONS (3)
  - AGITATION [None]
  - COMA [None]
  - MYOCLONUS [None]
